FAERS Safety Report 5191379-4 (Version None)
Quarter: 2006Q4

REPORT INFORMATION
  Report Type: 
  Country: None (occurrence: None)
  Receive Date: 20061226
  Receipt Date: 20061015
  Transmission Date: 20070319
  Serious: Yes (Hospitalization)
  Sender: FDA-Public Use
  Company Number: US-AMGEN-STX197025

PATIENT
  Sex: Female
  Weight: 81.9 kg

DRUGS (10)
  1. ENBREL [Suspect]
     Indication: RHEUMATOID ARTHRITIS
     Route: 058
     Dates: start: 20030201
  2. INFLUENZA VACCINE [Concomitant]
     Dates: start: 20061001
  3. ATACAND [Concomitant]
  4. SYNTHROID [Concomitant]
  5. HYDROCHLOROTHIAZIDE [Concomitant]
  6. ASPIRIN [Concomitant]
  7. NEURONTIN [Concomitant]
  8. FOSAMAX [Concomitant]
  9. ZOCOR [Concomitant]
  10. PREMPRO 14/14 [Concomitant]

REACTIONS (4)
  - CHILLS [None]
  - FLUSHING [None]
  - LUMBAR SPINAL STENOSIS [None]
  - PYREXIA [None]
